FAERS Safety Report 4957443-7 (Version None)
Quarter: 2006Q1

REPORT INFORMATION
  Report Type: 
  Country: None (occurrence: None)
  Receive Date: 20060327
  Receipt Date: 20060309
  Transmission Date: 20060701
  Serious: Yes (Other)
  Sender: FDA-Public Use
  Company Number: 8015467

PATIENT
  Sex: Male

DRUGS (2)
  1. KEPPRA [Suspect]
     Indication: EPILEPSY
     Dosage: 1000 MG /D
     Dates: end: 20051230
  2. KEPPRA [Suspect]
     Indication: EPILEPSY
     Dosage: 1000 MG /D
     Dates: start: 20060107

REACTIONS (8)
  - ANAEMIA [None]
  - CONVULSION [None]
  - DRUG INTOLERANCE [None]
  - EYE HAEMORRHAGE [None]
  - FEELING DRUNK [None]
  - ISCHAEMIC STROKE [None]
  - THROMBOCYTOPENIA [None]
  - VISUAL ACUITY REDUCED [None]
